FAERS Safety Report 8972578 (Version 1)
Quarter: 2012Q4

REPORT INFORMATION
  Report Type: 
  Country: US (occurrence: US)
  Receive Date: 20121219
  Receipt Date: 20121219
  Transmission Date: 20130627
  Serious: Yes (Hospitalization)
  Sender: FDA-Public Use
  Company Number: US-BAYER-2012-132510

PATIENT
  Age: 30 Year
  Sex: Female
  Weight: 68.03 kg

DRUGS (2)
  1. YASMIN [Suspect]
     Indication: CONTRACEPTION
     Dosage: UNK
     Dates: start: 2003, end: 2009
  2. ADVIL [Concomitant]
     Indication: PAIN
     Dosage: UNK UNK, PRN

REACTIONS (2)
  - Cholecystectomy [None]
  - Biliary dyskinesia [None]
